FAERS Safety Report 17177715 (Version 1)
Quarter: 2019Q4

REPORT INFORMATION
  Report Type: Spontaneous
  Country: CA (occurrence: CA)
  Receive Date: 20191219
  Receipt Date: 20191219
  Transmission Date: 20200122
  Serious: Yes (Life-Threatening)
  Sender: FDA-Public Use
  Company Number: CA-ROCHE-2497424

PATIENT
  Age: 39 Year
  Sex: Male

DRUGS (4)
  1. PANTOPRAZOLE [Concomitant]
     Active Substance: PANTOPRAZOLE
  2. CAPECITABINE. [Suspect]
     Active Substance: CAPECITABINE
     Indication: RECTAL ADENOCARCINOMA
     Route: 048
  3. OXALIPLATIN. [Concomitant]
     Active Substance: OXALIPLATIN
  4. TRIMETHOPRIM SULFAMETHOXAZOLE [Concomitant]
     Active Substance: SULFAMETHOXAZOLE\TRIMETHOPRIM
     Route: 065

REACTIONS (6)
  - Cardiac hypertrophy [Recovered/Resolved]
  - Left ventricular dysfunction [Recovered/Resolved]
  - Pericarditis [Recovered/Resolved]
  - Musculoskeletal pain [Recovered/Resolved]
  - Ejection fraction abnormal [Recovered/Resolved]
  - Myocarditis [Recovered/Resolved]
